FAERS Safety Report 5000975-6 (Version None)
Quarter: 2006Q2

REPORT INFORMATION
  Report Type: 
  Country: None (occurrence: None)
  Receive Date: 20060512
  Receipt Date: 20060502
  Transmission Date: 20061013
  Serious: Yes (Hospitalization)
  Sender: FDA-Public Use
  Company Number: FR-SANOFI-SYNTHELABO-A01200603375

PATIENT
  Age: 81 Year
  Sex: Male

DRUGS (2)
  1. PLAVIX [Suspect]
     Indication: AORTIC VALVE STENOSIS
     Route: 048
  2. ASPIRIN [Suspect]
     Indication: AORTIC VALVE STENOSIS
     Route: 048

REACTIONS (1)
  - VASCULAR PURPURA [None]
